FAERS Safety Report 7260528-6 (Version None)
Quarter: 2011Q1

REPORT INFORMATION
  Report Type: 
  Country: None (occurrence: None)
  Receive Date: 20110130
  Receipt Date: 20101220
  Transmission Date: 20110831
  Serious: No
  Sender: FDA-Public Use
  Company Number: US-ABBOTT-10P-163-0692719-00

PATIENT
  Age: 38 Year
  Sex: Female

DRUGS (1)
  1. HUMIRA [Suspect]
     Indication: RHEUMATOID ARTHRITIS
     Dates: start: 20101115

REACTIONS (4)
  - RASH ERYTHEMATOUS [None]
  - LIP SWELLING [None]
  - EYE SWELLING [None]
  - EXFOLIATIVE RASH [None]
